FAERS Safety Report 5020072-3 (Version None)
Quarter: 2006Q2

REPORT INFORMATION
  Report Type: 
  Country: None (occurrence: None)
  Receive Date: 20060607
  Receipt Date: 20060602
  Transmission Date: 20061013
  Serious: Yes (Hospitalization)
  Sender: FDA-Public Use
  Company Number: FR-GLAXOSMITHKLINE-B0426172A

PATIENT
  Age: 59 Year
  Sex: Male
  Weight: 45 kg

DRUGS (11)
  1. FORTUM [Suspect]
     Indication: SEPSIS
     Dosage: 6G PER DAY
     Route: 042
     Dates: start: 20060506, end: 20060518
  2. ACUPAN [Suspect]
     Dosage: 80MG PER DAY
     Route: 042
     Dates: start: 20060509, end: 20060515
  3. FOSFOCINE [Suspect]
     Dosage: 4G THREE TIMES PER DAY
     Route: 042
     Dates: start: 20060511, end: 20060518
  4. MORPHINE [Suspect]
     Dosage: 5MG FOUR TIMES PER DAY
     Route: 042
     Dates: start: 20060513
  5. ACETAMINOPHEN [Suspect]
     Dosage: 1G THREE TIMES PER DAY
     Route: 048
     Dates: start: 20060509
  6. VANCOMYCIN [Suspect]
     Dosage: 2G PER DAY
     Route: 042
     Dates: start: 20060511
  7. HYDROCORTISONE [Suspect]
     Dosage: 58MG FOUR TIMES PER DAY
     Route: 065
     Dates: start: 20060505
  8. NEXIUM [Suspect]
     Route: 065
  9. BISOPROLOL FUMARATE [Suspect]
     Dosage: 10MG PER DAY
  10. LOXEN [Suspect]
     Dosage: 50MG TWICE PER DAY
     Route: 065
  11. LOVENOX [Suspect]
     Route: 065
     Dates: start: 20060427

REACTIONS (4)
  - CONFUSIONAL STATE [None]
  - HYPERNATRAEMIA [None]
  - HYPOKALAEMIA [None]
  - MYOCLONUS [None]
